FAERS Safety Report 10945095 (Version 1)
Quarter: 2015Q1

REPORT INFORMATION
  Report Type: Spontaneous
  Country: US (occurrence: None)
  Receive Date: 20150212
  Receipt Date: 20150212
  Transmission Date: 20150721
  Serious: No
  Sender: FDA-Public Use
  Company Number: TPA2010A05100

PATIENT
  Age: 55 Year
  Sex: Male
  Weight: 104.33 kg

DRUGS (6)
  1. ULORIC [Suspect]
     Active Substance: FEBUXOSTAT
     Indication: GOUT
     Route: 048
     Dates: start: 20100903, end: 20110109
  2. INDOCIN (INDOMETACIN) [Concomitant]
  3. AVALIDE (HYDROCHLOROTHIAZIDE, IRBESARTAN) [Concomitant]
  4. IBUPROFEN. [Concomitant]
     Active Substance: IBUPROFEN
  5. AVAPRO [Suspect]
     Active Substance: IRBESARTAN
     Indication: HYPERTENSION
     Route: 048
     Dates: start: 20100903
  6. METOPROLOL [Concomitant]
     Active Substance: METOPROLOL

REACTIONS (3)
  - Chills [None]
  - Blood pressure increased [None]
  - Gout [None]

NARRATIVE: CASE EVENT DATE: 201009
